FAERS Safety Report 14067959 (Version 9)
Quarter: 2018Q3

REPORT INFORMATION
  Report Type: Spontaneous
  Country: FI (occurrence: FI)
  Receive Date: 20171009
  Receipt Date: 20180904
  Transmission Date: 20181010
  Serious: Yes (Death, Life-Threatening, Hospitalization, Other)
  Sender: FDA-Public Use
  Company Number: FI-009507513-1710FIN002546

PATIENT
  Age: 65 Year
  Sex: Male
  Weight: 60 kg

DRUGS (5)
  1. KEYTRUDA [Suspect]
     Active Substance: PEMBROLIZUMAB
     Indication: METASTASES TO THE MEDIASTINUM
  2. KEPPRA [Concomitant]
     Active Substance: LEVETIRACETAM
     Dosage: UNK
     Dates: start: 20171003
  3. KEYTRUDA [Suspect]
     Active Substance: PEMBROLIZUMAB
     Indication: METASTASES TO LYMPH NODES
     Dosage: UNK
  4. KEYTRUDA [Suspect]
     Active Substance: PEMBROLIZUMAB
     Indication: MALIGNANT MELANOMA
     Dosage: 135,MG,X1; IN TOTAL
     Route: 042
     Dates: start: 20170926, end: 20170926
  5. NEUROTOL SLOW [Concomitant]
     Indication: EPILEPSY
     Dosage: UNK
     Dates: end: 20171002

REACTIONS (15)
  - Unresponsive to stimuli [Fatal]
  - Fatigue [Not Recovered/Not Resolved]
  - Liver injury [Fatal]
  - Rash [Fatal]
  - International normalised ratio increased [Fatal]
  - Activated partial thromboplastin time prolonged [Fatal]
  - Pyrexia [Fatal]
  - Pancreatic cyst [Fatal]
  - Hepatic enzyme increased [Fatal]
  - Depressed level of consciousness [Fatal]
  - Hepatic steatosis [Unknown]
  - Bile duct necrosis [Fatal]
  - Skin reaction [Unknown]
  - Coagulation time prolonged [Unknown]
  - Pruritus [Unknown]

NARRATIVE: CASE EVENT DATE: 2017
